FAERS Safety Report 7962148-4 (Version None)
Quarter: 2011Q4

REPORT INFORMATION
  Report Type: 
  Country: None (occurrence: None)
  Receive Date: 20111207
  Receipt Date: 20111201
  Transmission Date: 20120403
  Serious: Yes (Other)
  Sender: FDA-Public Use
  Company Number: BR-ABBOTT-11P-020-0880203-00

PATIENT
  Sex: Female
  Weight: 64 kg

DRUGS (8)
  1. TENORETIC 100 [Concomitant]
     Indication: HYPERTENSION
     Route: 048
     Dates: start: 19810101
  2. LOSARTAN POTASSIUM [Concomitant]
     Indication: HYPERTENSION
     Route: 048
     Dates: start: 19810101
  3. ACTONEL [Concomitant]
     Indication: OSTEOPOROSIS
  4. OMEPRAZOLE [Concomitant]
     Indication: GASTRIC DISORDER
     Route: 048
     Dates: start: 20010101
  5. HUMIRA [Suspect]
     Route: 058
  6. HUMIRA [Suspect]
     Indication: RHEUMATOID ARTHRITIS
     Route: 058
     Dates: start: 20050901
  7. ACTONEL [Concomitant]
     Indication: SPINAL DISORDER
     Route: 048
     Dates: start: 20090101
  8. CALCIUM PHOSPHATE/ COLECALCIFEROL (OSTEONUTRI) [Concomitant]
     Indication: OSTEOPOROSIS
     Route: 048
     Dates: start: 19910101

REACTIONS (6)
  - KNEE ARTHROPLASTY [None]
  - ARTHRALGIA [None]
  - OSTEOPOROSIS [None]
  - FOOT OPERATION [None]
  - JOINT SWELLING [None]
  - SPINAL DISORDER [None]
